FAERS Safety Report 18071162 (Version 6)
Quarter: 2021Q3

REPORT INFORMATION
  Report Type: Report from Study
  Country: US (occurrence: US)
  Receive Date: 20200727
  Receipt Date: 20210720
  Transmission Date: 20211014
  Serious: Yes (Other)
  Sender: FDA-Public Use
  Company Number: NVSC2020US207512

PATIENT
  Age: 64 Year
  Sex: Male

DRUGS (2)
  1. ENTRESTO [Suspect]
     Active Substance: SACUBITRIL\VALSARTAN
     Indication: CARDIAC FAILURE
     Dosage: 1 DF, BID(24.26 MG)
     Route: 048
     Dates: start: 20200707
  2. ENTRESTO [Suspect]
     Active Substance: SACUBITRIL\VALSARTAN
     Dosage: 2 DF, BID(24.26 MG)
     Route: 048
     Dates: start: 20200707

REACTIONS (14)
  - Muscle spasticity [Recovering/Resolving]
  - Movement disorder [Recovering/Resolving]
  - Muscular weakness [Not Recovered/Not Resolved]
  - Fatigue [Recovering/Resolving]
  - Decreased appetite [Not Recovered/Not Resolved]
  - Cardiac failure congestive [Recovering/Resolving]
  - Cough [Recovered/Resolved]
  - Swelling [Recovering/Resolving]
  - Arthritis [Not Recovered/Not Resolved]
  - Constipation [Recovering/Resolving]
  - Abdominal discomfort [Recovering/Resolving]
  - Arthralgia [Not Recovered/Not Resolved]
  - Hypotension [Unknown]
  - Back pain [Not Recovered/Not Resolved]

NARRATIVE: CASE EVENT DATE: 20200717
